FAERS Safety Report 23804672 (Version 4)
Quarter: 2024Q2

REPORT INFORMATION
  Report Type: Spontaneous
  Country: MY (occurrence: MY)
  Receive Date: 20240501
  Receipt Date: 20240517
  Transmission Date: 20240715
  Serious: Yes (Other)
  Sender: FDA-Public Use
  Company Number: MY-ORGANON-O2404MYS003497

PATIENT
  Age: 32 Year
  Sex: Female
  Weight: 95 kg

DRUGS (4)
  1. ETONOGESTREL [Interacting]
     Active Substance: ETONOGESTREL
     Indication: Contraception
     Dosage: 1 IMPLANT (68 MG) IN THE LEFT ARM
     Route: 058
     Dates: start: 20211007, end: 202307
  2. EFAVIRENZ [Suspect]
     Active Substance: EFAVIRENZ
     Indication: Retroviral infection
     Dosage: 600 MILLIGRAM, QD
     Route: 048
     Dates: start: 20210319
  3. EMTRICITABINE\TENOFOVIR DISOPROXIL FUMARATE [Concomitant]
     Active Substance: EMTRICITABINE\TENOFOVIR DISOPROXIL FUMARATE
     Indication: Retroviral infection
     Dosage: 1 TABLET DAILY
     Route: 048
     Dates: start: 20210319
  4. DEPO-PROVERA [Concomitant]
     Active Substance: MEDROXYPROGESTERONE ACETATE
     Indication: Contraception
     Dosage: UNK
     Route: 030

REACTIONS (6)
  - Abortion spontaneous [Recovered/Resolved]
  - Pregnancy with implant contraceptive [Recovered/Resolved]
  - Unintended pregnancy [Recovered/Resolved]
  - Depressive symptom [Recovering/Resolving]
  - Treatment failure [Unknown]
  - Drug interaction [Unknown]

NARRATIVE: CASE EVENT DATE: 20220915
